FAERS Safety Report 16276113 (Version 4)
Quarter: 2019Q2

REPORT INFORMATION
  Report Type: Spontaneous
  Country: US (occurrence: US)
  Receive Date: 20190506
  Receipt Date: 20190628
  Transmission Date: 20190711
  Serious: No
  Sender: FDA-Public Use
  Company Number: US-SA-2019SA121973

PATIENT
  Age: 59 Year
  Sex: Male
  Weight: 74.8 kg

DRUGS (1)
  1. DUPIXENT [Suspect]
     Active Substance: DUPILUMAB
     Indication: DERMATITIS ATOPIC
     Dosage: 300 MG, QOW
     Route: 058
     Dates: start: 20180508

REACTIONS (8)
  - Eye pain [Recovering/Resolving]
  - Eye irritation [Recovering/Resolving]
  - Lacrimation increased [Unknown]
  - Ocular hyperaemia [Unknown]
  - Eye pruritus [Recovering/Resolving]
  - Eye disorder [Unknown]
  - Eye swelling [Unknown]
  - Unevaluable event [Unknown]

NARRATIVE: CASE EVENT DATE: 201901
